FAERS Safety Report 4446835-0 (Version None)
Quarter: 2004Q3

REPORT INFORMATION
  Report Type: 
  Country: None (occurrence: None)
  Receive Date: 20040908
  Receipt Date: 20040824
  Transmission Date: 20050211
  Serious: Yes (Hospitalization)
  Sender: FDA-Public Use
  Company Number: 2004230176US

PATIENT
  Age: 80 Year
  Sex: Female
  Weight: 77.1 kg

DRUGS (2)
  1. DETROL LA [Suspect]
     Indication: POLLAKIURIA
     Dosage: SEE IMAGE
     Dates: start: 20040813, end: 20040818
  2. DETROL LA [Suspect]
     Indication: POLLAKIURIA
     Dosage: SEE IMAGE
     Dates: start: 20040823

REACTIONS (3)
  - COLONOSCOPY ABNORMAL [None]
  - CONSTIPATION [None]
  - RECTAL HAEMORRHAGE [None]
